FAERS Safety Report 20144083 (Version 1)
Quarter: 2021Q4

REPORT INFORMATION
  Report Type: Spontaneous
  Country: US (occurrence: US)
  Receive Date: 20211203
  Receipt Date: 20211203
  Transmission Date: 20220303
  Serious: No
  Sender: FDA-Public Use
  Company Number: US-JNJFOC-20211146378

PATIENT
  Age: 42 Year
  Sex: Female

DRUGS (7)
  1. TYLENOL [Suspect]
     Active Substance: ACETAMINOPHEN
     Indication: Swelling
     Route: 065
     Dates: start: 2021
  2. MOTRIN [Suspect]
     Active Substance: IBUPROFEN
     Indication: Swelling
     Route: 065
     Dates: start: 2021
  3. ALEVE [Concomitant]
     Active Substance: NAPROXEN SODIUM
     Indication: Swelling
     Route: 065
     Dates: start: 2021
  4. COVID-19 VACCINE [Concomitant]
     Indication: Product used for unknown indication
     Dosage: 1ST DOSE
     Route: 065
     Dates: start: 20210916
  5. TORADOL [Concomitant]
     Active Substance: KETOROLAC TROMETHAMINE
     Indication: Product used for unknown indication
  6. BENADRYL [Concomitant]
     Active Substance: DIPHENHYDRAMINE HYDROCHLORIDE
     Indication: Product used for unknown indication
     Route: 065
  7. REGLAN [Concomitant]
     Active Substance: METOCLOPRAMIDE HYDROCHLORIDE
     Indication: Product used for unknown indication
     Route: 065

REACTIONS (1)
  - Product use in unapproved indication [Unknown]

NARRATIVE: CASE EVENT DATE: 20210101
